FAERS Safety Report 6867739-X (Version None)
Quarter: 2010Q3

REPORT INFORMATION
  Report Type: 
  Country: None (occurrence: None)
  Receive Date: 20100722
  Receipt Date: 20100716
  Transmission Date: 20110219
  Serious: Yes (Death)
  Sender: FDA-Public Use
  Company Number: JP-ROCHE-711775

PATIENT
  Sex: Male
  Weight: 57 kg

DRUGS (19)
  1. TOCILIZUMAB [Suspect]
     Indication: RHEUMATOID ARTHRITIS
     Route: 041
     Dates: start: 20091112, end: 20091112
  2. TOCILIZUMAB [Suspect]
     Route: 041
     Dates: start: 20091215, end: 20091215
  3. TOCILIZUMAB [Suspect]
     Route: 041
     Dates: start: 20100128, end: 20100128
  4. TOCILIZUMAB [Suspect]
     Route: 041
     Dates: start: 20100325, end: 20100325
  5. TOCILIZUMAB [Suspect]
     Route: 041
     Dates: start: 20100427, end: 20100427
  6. TOCILIZUMAB [Suspect]
     Route: 041
     Dates: start: 20100527, end: 20100527
  7. PREDONINE [Concomitant]
     Route: 048
     Dates: end: 20091026
  8. PREDONINE [Concomitant]
     Route: 048
     Dates: start: 20091027, end: 20100301
  9. PREDONINE [Concomitant]
     Route: 048
     Dates: start: 20100301, end: 20100413
  10. PREDONINE [Concomitant]
     Route: 048
     Dates: start: 20100414, end: 20100511
  11. PREDONINE [Concomitant]
     Route: 048
     Dates: start: 20100512
  12. ONEALFA [Concomitant]
     Dosage: FORM: PER ORAL AGENT
     Route: 048
  13. METHYCOBAL [Concomitant]
     Dosage: FORM: PER ORAL AGENT
     Route: 048
  14. MUCOSTA [Concomitant]
     Dosage: FORM: PER ORAL AGENT
     Route: 048
     Dates: start: 20100216, end: 20100216
  15. DASEN [Concomitant]
     Dosage: FORM: PER ORAL AGENT
     Route: 048
     Dates: start: 20100413
  16. CLARITHROMYCIN [Concomitant]
     Dosage: FORM: PER ORAL AGENT
     Route: 048
  17. CODEINE PHOSPHATE [Concomitant]
     Dosage: FORM: PER ORAL AGENT
     Route: 048
     Dates: start: 20100608, end: 20100615
  18. MEROPEN [Concomitant]
     Dosage: DRUG NAME: MEROPEN(MEROPENEM TRIHYDRATE)
     Route: 041
  19. VFEND [Concomitant]
     Route: 041
     Dates: start: 20100610, end: 20100615

REACTIONS (2)
  - BRONCHOPULMONARY ASPERGILLOSIS [None]
  - HAEMOPTYSIS [None]
